FAERS Safety Report 9471704 (Version 1)
Quarter: 2013Q3

REPORT INFORMATION
  Report Type: Spontaneous
  Country: GB (occurrence: None)
  Receive Date: 20130819
  Receipt Date: 20130819
  Transmission Date: 20140515
  Serious: Yes (Other)
  Sender: FDA-Public Use
  Company Number: AUR-APL-2013-06678

PATIENT
  Sex: Male

DRUGS (3)
  1. RIBAVIRIN (RIBAVIRIN) [Suspect]
     Indication: PRODUCT USED FOR UNKNOWN INDICATION
  2. INTERFERON ALFA (INTERFERON ALFA) [Suspect]
     Indication: PRODUCT USED FOR UNKNOWN INDICATION
  3. INCIVO (TELAPREVIR) [Suspect]
     Indication: PRODUCT USED FOR UNKNOWN INDICATION
     Dosage: 2250 MG (750 MG, 3 IN 1 D), ORAL
     Route: 048

REACTIONS (2)
  - Rectal haemorrhage [None]
  - Rectal abscess [None]
